FAERS Safety Report 21396023 (Version 1)
Quarter: 2022Q3

REPORT INFORMATION
  Report Type: Spontaneous
  Country: US (occurrence: None)
  Receive Date: 20220928
  Receipt Date: 20220928
  Transmission Date: 20221027
  Serious: Yes (Hospitalization)
  Sender: FDA-Public Use
  Company Number: None

PATIENT
  Age: 45 Year
  Sex: Female

DRUGS (1)
  1. AMBRISENTAN [Suspect]
     Active Substance: AMBRISENTAN
     Indication: Pulmonary arterial hypertension
     Dosage: FREQUENCY : DAILY;?
     Route: 048
     Dates: start: 20220901

REACTIONS (7)
  - Pain [None]
  - Sneezing [None]
  - Cough [None]
  - Productive cough [None]
  - Sinus congestion [None]
  - Cerebrovascular accident [None]
  - Therapy cessation [None]

NARRATIVE: CASE EVENT DATE: 20220901
